FAERS Safety Report 15941758 (Version 4)
Quarter: 2019Q3

REPORT INFORMATION
  Report Type: Report from Study
  Country: None (occurrence: CO)
  Receive Date: 20190209
  Receipt Date: 20190806
  Transmission Date: 20191004
  Serious: Yes (Hospitalization, Other)
  Sender: FDA-Public Use
  Company Number: CO-ABBVIE-19K-036-2659175-00

PATIENT
  Age: 35 Year
  Sex: Female
  Weight: 85 kg

DRUGS (3)
  1. ARCOXIA [Concomitant]
     Active Substance: ETORICOXIB
     Indication: PRODUCT USED FOR UNKNOWN INDICATION
     Route: 048
  2. HUMIRA [Suspect]
     Active Substance: ADALIMUMAB
     Dosage: HUMIRA AC
     Route: 058
  3. HUMIRA [Suspect]
     Active Substance: ADALIMUMAB
     Indication: ANKYLOSING SPONDYLITIS
     Route: 058
     Dates: start: 20180827

REACTIONS (11)
  - Vaginal infection [Not Recovered/Not Resolved]
  - Peripheral swelling [Recovering/Resolving]
  - Inflammation [Recovering/Resolving]
  - Bronchitis [Recovered/Resolved]
  - Productive cough [Recovered/Resolved]
  - Swelling [Recovering/Resolving]
  - Uterine inflammation [Recovering/Resolving]
  - Vaginal haemorrhage [Not Recovered/Not Resolved]
  - Pyrexia [Recovered/Resolved]
  - Uterine leiomyoma [Not Recovered/Not Resolved]
  - Lacrimation increased [Recovered/Resolved]

NARRATIVE: CASE EVENT DATE: 201811
